FAERS Safety Report 7649647-X (Version None)
Quarter: 2011Q3

REPORT INFORMATION
  Report Type: 
  Country: None (occurrence: None)
  Receive Date: 20110727
  Receipt Date: 20110714
  Transmission Date: 20111222
  Serious: Yes (Hospitalization)
  Sender: FDA-Public Use
  Company Number: UTC-008593

PATIENT
  Age: 63 Year
  Sex: Male
  Weight: 91.4 kg

DRUGS (4)
  1. TRACLEER [Concomitant]
  2. REVATIO [Concomitant]
  3. PLAVIX [Concomitant]
  4. REMODULIN [Suspect]
     Indication: PULMONARY ARTERIAL HYPERTENSION
     Dosage: 7.2 UG/KG (0.005 UG/KG,1 IN 1 MIN),SUBCUTANEOUS
     Route: 058
     Dates: start: 20110708

REACTIONS (1)
  - HAEMATEMESIS [None]
